FAERS Safety Report 25961144 (Version 2)
Quarter: 2025Q4

REPORT INFORMATION
  Report Type: Report from Study
  Country: US (occurrence: US)
  Receive Date: 20251027
  Receipt Date: 20251104
  Transmission Date: 20260118
  Serious: Yes (Other)
  Sender: ABBVIE
  Company Number: US-ABBVIE-6513781

PATIENT
  Age: 58 Year
  Sex: Female
  Weight: 104.32 kg

DRUGS (2)
  1. RINVOQ [Suspect]
     Active Substance: UPADACITINIB
     Indication: Rheumatoid arthritis
     Route: 048
     Dates: start: 20241123
  2. RINVOQ [Suspect]
     Active Substance: UPADACITINIB
     Indication: Rheumatoid arthritis
     Route: 048
     Dates: start: 202510

REACTIONS (4)
  - Joint arthroplasty [Recovering/Resolving]
  - Skin ulcer [Not Recovered/Not Resolved]
  - Skin ulcer [Recovered/Resolved]
  - Carpal tunnel decompression [Recovering/Resolving]

NARRATIVE: CASE EVENT DATE: 20250101
